FAERS Safety Report 16375298 (Version 2)
Quarter: 2019Q2

REPORT INFORMATION
  Report Type: Spontaneous
  Country: DE (occurrence: DE)
  Receive Date: 20190531
  Receipt Date: 20190610
  Transmission Date: 20190711
  Serious: Yes (Hospitalization, Other)
  Sender: FDA-Public Use
  Company Number: DE-TAKEDA-2019TUS033145

PATIENT
  Age: 55 Year
  Sex: Male

DRUGS (7)
  1. ACETYLSALICYLIC ACID [Concomitant]
     Active Substance: ASPIRIN
     Dosage: 100 MILLIGRAM, QD
     Route: 065
  2. NOVAMINSULFON 1 A PHARMA [Concomitant]
     Dosage: 40 GTT DROPS
     Route: 048
  3. ADENURIC [Suspect]
     Active Substance: FEBUXOSTAT
     Indication: GOUT
     Dosage: 80 MILLIGRAM, QD
     Route: 048
     Dates: start: 201710
  4. BUSCOPAN PLUS [Concomitant]
     Active Substance: ACETAMINOPHEN\BUTYLSCOPOLAMINE BROMIDE
     Dosage: UNK
     Route: 065
  5. VALSARTAN 1A PHARMA [Concomitant]
     Active Substance: VALSARTAN
     Dosage: 40 MILLIGRAM, BID
     Route: 065
  6. METFORMIN 1A PHARMA [Concomitant]
     Active Substance: METFORMIN HYDROCHLORIDE
     Dosage: 500 MILLIGRAM, BID
     Route: 065
  7. OXYCODONE [Concomitant]
     Active Substance: OXYCODONE
     Dosage: 5 MILLIGRAM, BID
     Route: 065

REACTIONS (3)
  - Escherichia urinary tract infection [Recovered/Resolved]
  - Aortitis [Recovered/Resolved]
  - Vascular device infection [Recovered/Resolved]
